FAERS Safety Report 5752873-8 (Version None)
Quarter: 2008Q2

REPORT INFORMATION
  Report Type: 
  Country: None (occurrence: None)
  Receive Date: 20080529
  Receipt Date: 20080501
  Transmission Date: 20081010
  Serious: No
  Sender: FDA-Public Use
  Company Number: US-BOEHRINGER INGELHEIM GMBH, GERMANY-2008-BP-06840BP

PATIENT
  Sex: Female

DRUGS (5)
  1. AGGRENOX [Suspect]
     Indication: CEREBROVASCULAR ACCIDENT
     Route: 048
     Dates: start: 20040101
  2. BENICAR [Suspect]
  3. LIPITOR [Suspect]
  4. DIAZIDE [Concomitant]
     Indication: HYPERTENSION
  5. OMEGA-3 (MVI, CA IRON) [Concomitant]

REACTIONS (4)
  - COUGH [None]
  - HYPERSENSITIVITY [None]
  - LIP SWELLING [None]
  - PRURITUS [None]
